FAERS Safety Report 19101057 (Version 1)
Quarter: 2021Q2

REPORT INFORMATION
  Report Type: Spontaneous
  Country: US (occurrence: US)
  Receive Date: 20210407
  Receipt Date: 20210407
  Transmission Date: 20210717
  Serious: No
  Sender: FDA-Public Use
  Company Number: US-ALM-HQ-US-2021-0510

PATIENT
  Sex: Male

DRUGS (1)
  1. KLISYRI [Suspect]
     Active Substance: TIRBANIBULIN
     Indication: ACTINIC KERATOSIS
     Dosage: APPLYING HALF A PACKET TO EACH BACK OF THE HAND ONCE DAILY (TOTAL OF 1 PACKET A DAY).
     Route: 061

REACTIONS (2)
  - Erythema [Not Recovered/Not Resolved]
  - Burning sensation [Not Recovered/Not Resolved]
